FAERS Safety Report 9938552 (Version 3)
Quarter: 2014Q2

REPORT INFORMATION
  Report Type: Spontaneous
  Country: US (occurrence: US)
  Receive Date: 20140303
  Receipt Date: 20140630
  Transmission Date: 20141212
  Serious: Yes (Hospitalization, Other)
  Sender: FDA-Public Use
  Company Number: 2014SP001040

PATIENT
  Age: 63 Year
  Sex: Male
  Weight: 83.4 kg

DRUGS (20)
  1. DOXORUBICIN [Suspect]
     Route: 040
     Dates: start: 20120606
  2. AMITRIPTYLINE [Concomitant]
     Dates: start: 20120906
  3. FENTANYL [Concomitant]
     Dates: start: 20120830
  4. FERROUS SULFATE [Concomitant]
     Dates: start: 20120815
  5. NEURONTIN [Concomitant]
     Dates: start: 20120815
  6. LORAZEPAM [Concomitant]
     Dates: start: 20120613
  7. ASCORBIC ACID [Concomitant]
     Dates: start: 20111010
  8. CALCIUM PANTOTHENATE [Concomitant]
     Dates: start: 20111010
  9. ERGOCALCIFEROL [Concomitant]
     Dates: start: 20111010
  10. NICOTINAMIDE [Concomitant]
     Dates: start: 20111010
  11. PYRIDOXINE HYDROCHLORIDE [Concomitant]
     Dates: start: 20111010
  12. RETINOL [Concomitant]
     Dates: start: 20111010
  13. RIBOFLAVIN [Concomitant]
     Dates: start: 20111010
  14. THIAMINE HYDROCHLORIDE [Concomitant]
     Dates: start: 20111010
  15. NYSTATIN [Concomitant]
     Dates: start: 20120711
  16. ONDANSETRON [Concomitant]
     Dates: start: 20120701
  17. OXYCODONE [Concomitant]
     Dates: start: 20120302
  18. PROCHLORPERAZINE EDISYLATE [Concomitant]
     Dates: start: 20120718
  19. EFFEXOR [Concomitant]
     Dates: start: 20120711
  20. LEVAQUIN [Concomitant]
     Dates: start: 20120912, end: 20120924

REACTIONS (5)
  - Pneumonia [Unknown]
  - Urinary tract infection [Unknown]
  - Sepsis [Unknown]
  - Pain [Not Recovered/Not Resolved]
  - Pyrexia [Unknown]
